FAERS Safety Report 7272035-5 (Version None)
Quarter: 2011Q1

REPORT INFORMATION
  Report Type: 
  Country: None (occurrence: None)
  Receive Date: 20110203
  Receipt Date: 20110131
  Transmission Date: 20110831
  Serious: Yes (Other)
  Sender: FDA-Public Use
  Company Number: BE-PFIZER INC-2010134969

PATIENT
  Age: 62 Year
  Sex: Male
  Weight: 86 kg

DRUGS (7)
  1. AMLODIPINE [Concomitant]
     Dosage: 10 MG, 1X/DAY
     Route: 048
     Dates: start: 20100801
  2. OMEPRAZOLE [Concomitant]
     Dosage: 20 MG, UNK
     Route: 048
     Dates: start: 20100117
  3. SUTENT [Suspect]
     Indication: METASTATIC RENAL CELL CARCINOMA
     Dosage: 50 MG, 2X/DAY
     Route: 048
     Dates: start: 20100730, end: 20101014
  4. ZANTAC [Concomitant]
     Dosage: 150 MG, 1X/DAY
     Route: 048
     Dates: start: 20100601, end: 20100901
  5. NEBIVOLOL [Concomitant]
     Dosage: 5 MG, UNK
     Route: 048
     Dates: start: 20090101, end: 20100801
  6. MEDROL [Concomitant]
     Dosage: 16 MG, 1X/DAY
     Route: 048
     Dates: start: 20100601, end: 20101101
  7. ASAFLOW [Concomitant]
     Dosage: 80 MG, 1X/DAY
     Route: 048
     Dates: start: 20090101

REACTIONS (3)
  - THROMBOCYTOPENIA [None]
  - PURPURA [None]
  - TYPE IV HYPERSENSITIVITY REACTION [None]
